FAERS Safety Report 12764905 (Version 1)
Quarter: 2016Q3

REPORT INFORMATION
  Report Type: Spontaneous
  Country: JP (occurrence: JP)
  Receive Date: 20160921
  Receipt Date: 20160921
  Transmission Date: 20161109
  Serious: Yes (Other)
  Sender: FDA-Public Use
  Company Number: JP-SUN PHARMACEUTICAL INDUSTRIES LTD-2016R1-124212

PATIENT
  Age: 45 Year
  Sex: Female

DRUGS (1)
  1. DEXMEDETOMIDINE. [Suspect]
     Active Substance: DEXMEDETOMIDINE
     Indication: SEDATIVE THERAPY
     Route: 065

REACTIONS (2)
  - Respiratory depression [Recovering/Resolving]
  - Upper airway obstruction [Recovering/Resolving]
